FAERS Safety Report 5381286-6 (Version None)
Quarter: 2007Q3

REPORT INFORMATION
  Report Type: 
  Country: None (occurrence: None)
  Receive Date: 20070702
  Receipt Date: 20060727
  Transmission Date: 20080115
  Serious: Yes (Disabling)
  Sender: FDA-Public Use
  Company Number: SUS1-2006-00464

PATIENT
  Age: 17 Year
  Sex: Male

DRUGS (3)
  1. PENTASA [Suspect]
     Indication: COLITIS ULCERATIVE
     Dosage: 500 MG, 3X/DAY;TID, ORAL ; 250 MG, 3X/DAY:TID, ORAL ; 500 MG, 3X/DAY:TID, ORAL
     Route: 048
     Dates: start: 20040617, end: 20040815
  2. PENTASA [Suspect]
     Indication: COLITIS ULCERATIVE
     Dosage: 500 MG, 3X/DAY;TID, ORAL ; 250 MG, 3X/DAY:TID, ORAL ; 500 MG, 3X/DAY:TID, ORAL
     Route: 048
     Dates: start: 20040816, end: 20040922
  3. PENTASA [Suspect]
     Indication: COLITIS ULCERATIVE
     Dosage: 500 MG, 3X/DAY;TID, ORAL ; 250 MG, 3X/DAY:TID, ORAL ; 500 MG, 3X/DAY:TID, ORAL
     Route: 048
     Dates: start: 20051111, end: 20060405

REACTIONS (1)
  - NEPHRITIS INTERSTITIAL [None]
